FAERS Safety Report 16824013 (Version 1)
Quarter: 2019Q3

REPORT INFORMATION
  Report Type: Spontaneous
  Country: US (occurrence: US)
  Receive Date: 20190918
  Receipt Date: 20190918
  Transmission Date: 20191005
  Serious: No
  Sender: FDA-Public Use
  Company Number: US-ALVOGEN-2019-ALVOGEN-099191

PATIENT
  Sex: Female

DRUGS (2)
  1. COLESTIPOL [Concomitant]
     Active Substance: COLESTIPOL
     Indication: DUMPING SYNDROME
  2. CLINDAMYCIN. [Suspect]
     Active Substance: CLINDAMYCIN
     Indication: PRODUCT USED FOR UNKNOWN INDICATION
     Dosage: EVERY 8 HOURS

REACTIONS (1)
  - Drug ineffective [Recovered/Resolved]
